FAERS Safety Report 9622845 (Version 2)
Quarter: 2014Q2

REPORT INFORMATION
  Report Type: Spontaneous
  Country: AU (occurrence: AU)
  Receive Date: 20131015
  Receipt Date: 20140530
  Transmission Date: 20141212
  Serious: Yes (Death, Congenital Anomaly)
  Sender: FDA-Public Use
  Company Number: AU-ABBVIE-13P-008-1157420-00

PATIENT
  Sex: 0

DRUGS (3)
  1. VALPROATE SODIUM [Suspect]
     Indication: MATERNAL EXPOSURE TIMING UNSPECIFIED
     Route: 064
  2. CARBAMAZEPINE [Suspect]
     Indication: MATERNAL EXPOSURE TIMING UNSPECIFIED
     Route: 064
  3. PHENYTOIN SODIUM [Suspect]
     Indication: MATERNAL EXPOSURE TIMING UNSPECIFIED
     Route: 064

REACTIONS (6)
  - Death neonatal [Fatal]
  - Cleft palate [Unknown]
  - Congenital hydrocephalus [Unknown]
  - Microcephaly [Unknown]
  - Multiple congenital abnormalities [Unknown]
  - Foetal exposure during pregnancy [Unknown]
